FAERS Safety Report 6740104-1 (Version None)
Quarter: 2010Q2

REPORT INFORMATION
  Report Type: 
  Country: None (occurrence: None)
  Receive Date: 20100525
  Receipt Date: 20100517
  Transmission Date: 20101027
  Serious: Yes (Other)
  Sender: FDA-Public Use
  Company Number: ES-JNJFOC-20100507996

PATIENT
  Sex: Male

DRUGS (1)
  1. STELARA [Suspect]
     Indication: PUSTULAR PSORIASIS
     Route: 058

REACTIONS (2)
  - OFF LABEL USE [None]
  - WHITE BLOOD CELL DISORDER [None]
